FAERS Safety Report 17070195 (Version 2)
Quarter: 2019Q4

REPORT INFORMATION
  Report Type: Spontaneous
  Country: NL (occurrence: NL)
  Receive Date: 20191125
  Receipt Date: 20191218
  Transmission Date: 20200122
  Serious: Yes (Hospitalization, Other)
  Sender: FDA-Public Use
  Company Number: NL-TEVA-2019-NL-1142487

PATIENT
  Age: 83 Year
  Sex: Female
  Weight: 70 kg

DRUGS (10)
  1. SALBUTAMOL MYLAN [Suspect]
     Active Substance: ALBUTEROL
     Indication: CHRONIC OBSTRUCTIVE PULMONARY DISEASE
     Dosage: FIRST A WEEK 4 X 1 PUFF AND LATER 4 X 2 PUFFS
     Route: 065
     Dates: start: 20191013, end: 20191104
  2. ATENOLOL. [Concomitant]
     Active Substance: ATENOLOL
     Indication: HYPERTENSION
     Dates: start: 1986
  3. PANTOZOL [Concomitant]
     Active Substance: PANTOPRAZOLE SODIUM
     Indication: PROPHYLAXIS AGAINST GASTROINTESTINAL ULCER
     Dosage: 40 MILLIGRAM DAILY;
     Route: 065
     Dates: start: 1998
  4. ATENOLOL. [Concomitant]
     Active Substance: ATENOLOL
     Dates: start: 2014
  5. INSULIN [Concomitant]
     Active Substance: INSULIN NOS
     Indication: DIABETES MELLITUS
     Dates: start: 1986
  6. DICLOFENAC [Concomitant]
     Active Substance: DICLOFENAC
     Indication: RHEUMATOID ARTHRITIS
     Dosage: 100 MILLIGRAM DAILY;
     Route: 065
  7. NOVOMIX [Concomitant]
     Active Substance: INSULIN ASPART
     Dosage: DAILY DOSE: 1 X 32 IU AND 1 X 34 IU
     Route: 058
     Dates: start: 1986
  8. APIXABAN [Concomitant]
     Active Substance: APIXABAN
     Indication: ATRIAL FIBRILLATION
     Dates: start: 2016
  9. BERODUAL [Concomitant]
     Active Substance: FENOTEROL HYDROBROMIDE\IPRATROPIUM BROMIDE
     Dates: start: 2019, end: 2019
  10. SPIOLTO [Concomitant]
     Active Substance: OLODATEROL HYDROCHLORIDE\TIOTROPIUM BROMIDE MONOHYDRATE
     Indication: CHRONIC OBSTRUCTIVE PULMONARY DISEASE
     Dosage: 1X PER DAY 2 PUFFS
     Dates: start: 2016

REACTIONS (6)
  - Atrial fibrillation [Not Recovered/Not Resolved]
  - Atrial fibrillation [Recovered/Resolved]
  - Arrhythmia [Unknown]
  - Dyspnoea [Recovered/Resolved]
  - Product substitution issue [Unknown]
  - Adverse drug reaction [Unknown]

NARRATIVE: CASE EVENT DATE: 20191013
